FAERS Safety Report 9452693 (Version 1)
Quarter: 2013Q3

REPORT INFORMATION
  Report Type: Spontaneous
  Country: AU (occurrence: AU)
  Receive Date: 20130812
  Receipt Date: 20130812
  Transmission Date: 20140515
  Serious: Yes (Other)
  Sender: FDA-Public Use
  Company Number: AU-BAYER-2013-093098

PATIENT
  Age: 39 Year
  Sex: Female

DRUGS (5)
  1. NIFEDIPINE [Suspect]
     Indication: GESTATIONAL HYPERTENSION
  2. THYROXINE [Concomitant]
     Indication: HYPOTHYROIDISM
  3. METYRAPONE [Concomitant]
     Indication: CUSHING^S SYNDROME
     Dosage: 250 MG, BID
  4. METHYLDOPA [Concomitant]
     Indication: HYPERTENSION
  5. INSULIN [Concomitant]
     Indication: GESTATIONAL DIABETES

REACTIONS (3)
  - Pre-eclampsia [None]
  - Premature labour [None]
  - Exposure during pregnancy [None]
